FAERS Safety Report 24556611 (Version 1)
Quarter: 2024Q4

REPORT INFORMATION
  Report Type: Spontaneous
  Country: US (occurrence: US)
  Receive Date: 20241028
  Receipt Date: 20241028
  Transmission Date: 20250115
  Serious: No
  Sender: ROCHE
  Company Number: US-ROCHE-10000114167

PATIENT
  Age: 60 Year
  Sex: Female

DRUGS (2)
  1. ACTEMRA [Suspect]
     Active Substance: TOCILIZUMAB
     Indication: Product used for unknown indication
     Dosage: ONE PEN?STRENGTH: 162MG/0.9ML
     Route: 058
     Dates: start: 2024
  2. ACTEMRA [Suspect]
     Active Substance: TOCILIZUMAB
     Dosage: THREE PENS
     Route: 058
     Dates: start: 2024

REACTIONS (3)
  - Accidental underdose [Unknown]
  - No adverse event [Unknown]
  - Wrong technique in device usage process [Unknown]

NARRATIVE: CASE EVENT DATE: 20241001
